FAERS Safety Report 8339730-8 (Version None)
Quarter: 2012Q2

REPORT INFORMATION
  Report Type: 
  Country: None (occurrence: None)
  Receive Date: 20120507
  Receipt Date: 20120427
  Transmission Date: 20120825
  Serious: Yes (Death)
  Sender: FDA-Public Use
  Company Number: US-SANOFI-AVENTIS-2012SA030203

PATIENT
  Age: 60 Year
  Sex: Male
  Weight: 122.4 kg

DRUGS (7)
  1. OXALIPLATIN [Suspect]
     Route: 041
     Dates: start: 20111221, end: 20111221
  2. LEUCOVORIN CALCIUM [Suspect]
     Route: 041
     Dates: start: 20111221, end: 20120128
  3. HYDROCODONE BITARTRATE + ACETAMINOPHEN [Concomitant]
  4. OXALIPLATIN [Suspect]
     Route: 041
     Dates: start: 20120118, end: 20120118
  5. FLUOROURACIL [Suspect]
     Route: 041
     Dates: start: 20111221, end: 20120128
  6. PANTOPRAZOLE [Concomitant]
  7. LORAZEPAM [Concomitant]

REACTIONS (1)
  - DEATH [None]
